FAERS Safety Report 5243997-2 (Version None)
Quarter: 2007Q1

REPORT INFORMATION
  Report Type: 
  Country: None (occurrence: None)
  Receive Date: 20070222
  Receipt Date: 20070209
  Transmission Date: 20070707
  Serious: Yes (Death, Hospitalization)
  Sender: FDA-Public Use
  Company Number: 2007SE00479

PATIENT
  Age: 73 Year
  Sex: Female

DRUGS (5)
  1. BLOPRESS [Suspect]
     Indication: HYPERTENSION
     Route: 048
     Dates: start: 20060914, end: 20061012
  2. BLOPRESS [Suspect]
     Route: 048
     Dates: start: 20061013, end: 20061123
  3. ASPIRIN [Suspect]
     Route: 048
     Dates: start: 20060223, end: 20061123
  4. OLMETEC [Concomitant]
     Indication: HYPERTENSION
     Route: 048
     Dates: start: 20060309, end: 20061123
  5. LIVALO [Concomitant]
     Route: 048
     Dates: start: 20060309, end: 20061123

REACTIONS (1)
  - BRAIN STEM HAEMORRHAGE [None]
